FAERS Safety Report 5698400-5 (Version None)
Quarter: 2008Q2

REPORT INFORMATION
  Report Type: 
  Country: None (occurrence: None)
  Receive Date: 20080403
  Receipt Date: 20080401
  Transmission Date: 20081010
  Serious: Yes (Hospitalization)
  Sender: FDA-Public Use
  Company Number: 2007SP024021

PATIENT
  Age: 36 Year
  Sex: Female
  Weight: 48 kg

DRUGS (7)
  1. TEMODAL [Suspect]
     Indication: ANAPLASTIC ASTROCYTOMA
     Dosage: 75 MG/M2;QD;PO
     Route: 048
     Dates: start: 20061019, end: 20061120
  2. TEMODAL [Suspect]
     Indication: RECURRENT CANCER
     Dosage: 75 MG/M2;QD;PO
     Route: 048
     Dates: start: 20061019, end: 20061120
  3. MASEA-OD [Concomitant]
  4. MAGMITT [Concomitant]
  5. PARIET [Concomitant]
  6. ULCERLMIN [Concomitant]
  7. DEPAKENE [Concomitant]

REACTIONS (2)
  - MENINGITIS ASEPTIC [None]
  - POST PROCEDURAL COMPLICATION [None]
